FAERS Safety Report 21876325 (Version 5)
Quarter: 2023Q1

REPORT INFORMATION
  Report Type: Report from Study
  Country: PT (occurrence: PT)
  Receive Date: 20230118
  Receipt Date: 20230207
  Transmission Date: 20230417
  Serious: Yes (Hospitalization, Other)
  Sender: FDA-Public Use
  Company Number: PT-ABBVIE-4273711

PATIENT
  Age: 70 Year
  Sex: Female

DRUGS (10)
  1. CARBIDOPA\LEVODOPA [Suspect]
     Active Substance: CARBIDOPA\LEVODOPA
     Indication: Parkinson^s disease
     Dosage: 20 MG + 5 MG (VIA NJ)?MORN:12CC;MAIN:5CC/H;EXTRA:1CC
     Route: 050
     Dates: start: 20230112
  2. CARBIDOPA\LEVODOPA [Suspect]
     Active Substance: CARBIDOPA\LEVODOPA
     Dosage: 20 MG + 5 MG (VIA NJ)?MORN:12CC(+5CC);MAIN:4.6CC/H;EXTRA:1CC
     Route: 050
     Dates: start: 202301, end: 20230116
  3. CARBIDOPA\LEVODOPA [Suspect]
     Active Substance: CARBIDOPA\LEVODOPA
     Dosage: 20 MG + 5 MG (VIA NJ)?MORN:12CC;MAIN:5.3CC/H;EXTRA:1CC
     Route: 050
     Dates: start: 20230116, end: 20230117
  4. CARBIDOPA\LEVODOPA [Suspect]
     Active Substance: CARBIDOPA\LEVODOPA
     Dosage: 20 MG + 5 MG (VIA NJ)?MORN:12CC;MAIN:5.6CC/H;EXTRA:1CC
     Route: 050
     Dates: start: 20230117
  5. DOMPERIDONE [Concomitant]
     Active Substance: DOMPERIDONE
     Indication: Product used for unknown indication
     Dosage: TIME INTERVAL: 0.33333333 DAYS: START DATE : BEFORE DUODOPA
     Route: 048
  6. levodopa+ carbidopa CR (200+50mg) [Concomitant]
     Indication: Parkinson^s disease
     Dosage: 1.5 TABLET
     Route: 048
  7. CLOZAPINE [Concomitant]
     Active Substance: CLOZAPINE
     Indication: Product used for unknown indication
     Dosage: 4 TABLET?START DATE : BEFORE DUODOPA
     Route: 048
  8. Levodopa + Carbidopa fairmed [Concomitant]
     Indication: Parkinson^s disease
     Dosage: 1.5 TABLET?START DATE: BEFORE DUODOPA
     Route: 048
  9. DIAZEPAM [Concomitant]
     Active Substance: DIAZEPAM
     Indication: Product used for unknown indication
     Dosage: 1 TABLET?START DATE : BEFORE DUODOPA
     Route: 048
  10. MIRTAZAPINE [Concomitant]
     Active Substance: MIRTAZAPINE
     Indication: Product used for unknown indication
     Dosage: 3 TABLET AT DINNER?START DATE : BEFORE DUODOPA
     Route: 048

REACTIONS (6)
  - Respiratory failure [Recovered/Resolved]
  - Increased bronchial secretion [Recovered/Resolved]
  - Wheezing [Recovered/Resolved]
  - Pyrexia [Recovered/Resolved]
  - Pneumonia aspiration [Recovered/Resolved]
  - Hospitalisation [Recovered/Resolved]

NARRATIVE: CASE EVENT DATE: 20230114
